FAERS Safety Report 9126045 (Version 2)
Quarter: 2013Q2

REPORT INFORMATION
  Report Type: Spontaneous
  Country: JP (occurrence: JP)
  Receive Date: 20130117
  Receipt Date: 20130408
  Transmission Date: 20140414
  Serious: Yes (Hospitalization)
  Sender: FDA-Public Use
  Company Number: JP-ASTELLAS-2013JP000283

PATIENT
  Age: 9 Year
  Sex: Male
  Weight: 39 kg

DRUGS (8)
  1. PROGRAF [Suspect]
     Indication: PROPHYLAXIS AGAINST GRAFT VERSUS HOST DISEASE
     Dosage: 1.2 MG, BID
     Route: 048
     Dates: start: 20111107
  2. MYCOSYST [Concomitant]
     Indication: INFECTION PROPHYLAXIS
     Dosage: 100 MG, UID/QD
     Route: 048
     Dates: start: 201105
  3. AMLODIPINE [Concomitant]
     Indication: HYPERTENSION
     Dosage: 10 MG, UID/QD
     Route: 048
     Dates: start: 20111031
  4. BAKTAR [Concomitant]
     Indication: PROPHYLAXIS
     Dosage: UNK
     Route: 048
     Dates: start: 201105
  5. CORTRIL                            /00028601/ [Concomitant]
     Indication: SECONDARY ADRENOCORTICAL INSUFFICIENCY
     Dosage: 10 MG, UID/QD
     Route: 048
     Dates: start: 20110912
  6. URSAMIC [Concomitant]
     Indication: HEPATIC FUNCTION ABNORMAL
     Dosage: 50 MG, TID
     Route: 048
     Dates: start: 20110922
  7. HEPAFLUSH [Concomitant]
     Indication: ANTICOAGULANT THERAPY
     Dosage: 5 ML, UID/QD
     Route: 042
     Dates: start: 20110824
  8. METHOTREXATE [Concomitant]
     Indication: PROPHYLAXIS AGAINST GRAFT VERSUS HOST DISEASE
     Route: 065

REACTIONS (2)
  - Milk allergy [Recovering/Resolving]
  - Gastroenteritis eosinophilic [Recovering/Resolving]
